FAERS Safety Report 5178935-4 (Version None)
Quarter: 2006Q4

REPORT INFORMATION
  Report Type: 
  Country: None (occurrence: None)
  Receive Date: 20061214
  Receipt Date: 20061214
  Transmission Date: 20070319
  Serious: Yes (Other)
  Sender: FDA-Public Use
  Company Number: None

PATIENT
  Age: 42 Year
  Sex: Female
  Weight: 95.2554 kg

DRUGS (1)
  1. DAY TIME MULTI-SYMPTOM        SAFEWAY [Suspect]
     Indication: SINUS HEADACHE
     Dosage: 2 TABLESPOONS   2 TIMES  PO
     Route: 048
     Dates: start: 20061206, end: 20061208

REACTIONS (3)
  - PHARMACEUTICAL PRODUCT COMPLAINT [None]
  - RECTAL HAEMORRHAGE [None]
  - THROAT IRRITATION [None]
